FAERS Safety Report 5830037-7 (Version None)
Quarter: 2008Q3

REPORT INFORMATION
  Report Type: 
  Country: None (occurrence: None)
  Receive Date: 20080801
  Receipt Date: 20080723
  Transmission Date: 20090109
  Serious: Yes (Disabling, Other)
  Sender: FDA-Public Use
  Company Number: US-BAYER-200821200NA

PATIENT
  Sex: Female

DRUGS (2)
  1. MAGNEVIST [Suspect]
     Indication: ANGIOGRAM
     Dates: start: 20060914, end: 20060914
  2. MAGNEVIST [Suspect]
     Dates: start: 20070127, end: 20070127

REACTIONS (5)
  - ARTHROPATHY [None]
  - INJURY [None]
  - MOBILITY DECREASED [None]
  - NEPHROGENIC SYSTEMIC FIBROSIS [None]
  - SCAR [None]
